FAERS Safety Report 6250568-8 (Version None)
Quarter: 2009Q2

REPORT INFORMATION
  Report Type: 
  Country: None (occurrence: None)
  Receive Date: 20090630
  Receipt Date: 20090617
  Transmission Date: 20091009
  Serious: Yes (Other)
  Sender: FDA-Public Use
  Company Number: US-PFIZER INC-2009162897

PATIENT
  Sex: Male
  Weight: 74.842 kg

DRUGS (4)
  1. CHANTIX [Suspect]
     Indication: SMOKING CESSATION THERAPY
     Route: 048
     Dates: start: 20090110, end: 20090120
  2. MOBIC [Concomitant]
     Dosage: 15 MG, 1X/DAY
     Dates: start: 20090109
  3. ULTRAM [Concomitant]
     Dosage: UNK
  4. ULTRAM [Concomitant]
     Dosage: 50MG EVERY 6HRS AS NEEDED
     Dates: start: 20090109

REACTIONS (4)
  - DIZZINESS [None]
  - FALL [None]
  - HEAD INJURY [None]
  - SYNCOPE [None]
